FAERS Safety Report 5448685-5 (Version None)
Quarter: 2007Q3

REPORT INFORMATION
  Report Type: 
  Country: None (occurrence: None)
  Receive Date: 20070911
  Receipt Date: 20070904
  Transmission Date: 20080115
  Serious: Yes (Disabling, Other)
  Sender: FDA-Public Use
  Company Number: A0669832A

PATIENT
  Age: 67 Year
  Sex: Male
  Weight: 98.6 kg

DRUGS (12)
  1. AVANDIA [Suspect]
     Dosage: 8MG UNKNOWN
     Route: 048
     Dates: start: 19970101
  2. METFORMIN HCL [Concomitant]
  3. SULFONYLUREA [Concomitant]
  4. METAGLIP [Concomitant]
     Route: 048
     Dates: start: 20030101
  5. LASIX [Concomitant]
     Dosage: 80MG TWICE PER DAY
     Dates: start: 20020101
  6. HYDRALAZINE HCL [Concomitant]
     Dosage: 20MG TWICE PER DAY
  7. ZAROXOLYN [Concomitant]
     Dosage: 5MG AS REQUIRED
  8. SPIRONOLACTONE [Concomitant]
     Dosage: 25MG PER DAY
     Dates: start: 20020101
  9. ISOSORBIDE DINITRATE [Concomitant]
     Dosage: 30MG PER DAY
     Dates: start: 20020101
  10. COREG [Concomitant]
     Dosage: 25MG TWICE PER DAY
     Dates: start: 20020101
  11. TRAZODONE HCL [Concomitant]
     Dosage: 25MG PER DAY
  12. LIPITOR [Concomitant]
     Dosage: 80MG PER DAY

REACTIONS (12)
  - CARDIAC FAILURE [None]
  - CARDIAC FAILURE CONGESTIVE [None]
  - CARDIOMYOPATHY [None]
  - DYSPNOEA [None]
  - DYSPNOEA EXERTIONAL [None]
  - EJECTION FRACTION DECREASED [None]
  - FLUID OVERLOAD [None]
  - GALLOP RHYTHM PRESENT [None]
  - JUGULAR VEIN DISTENSION [None]
  - OEDEMA PERIPHERAL [None]
  - ORTHOPNOEA [None]
  - WEIGHT INCREASED [None]
